FAERS Safety Report 6760743-1 (Version None)
Quarter: 2010Q2

REPORT INFORMATION
  Report Type: 
  Country: None (occurrence: None)
  Receive Date: 20100608
  Receipt Date: 20100528
  Transmission Date: 20101027
  Serious: Yes (Hospitalization)
  Sender: FDA-Public Use
  Company Number: CN-SANOFI-AVENTIS-2010SA030568

PATIENT
  Age: 80 Year
  Sex: Female

DRUGS (4)
  1. PLAVIX [Suspect]
     Indication: PERCUTANEOUS CORONARY INTERVENTION
     Route: 048
     Dates: start: 20100401
  2. ASPIRIN [Concomitant]
     Indication: PERCUTANEOUS CORONARY INTERVENTION
     Route: 048
     Dates: start: 20100401
  3. GLYCERYL TRINITRATE [Concomitant]
     Indication: PERCUTANEOUS CORONARY INTERVENTION
  4. SIMVASTATIN [Concomitant]
     Indication: PERCUTANEOUS CORONARY INTERVENTION

REACTIONS (1)
  - NEUTROPENIA [None]
